FAERS Safety Report 6784786-7 (Version None)
Quarter: 2010Q2

REPORT INFORMATION
  Report Type: 
  Country: None (occurrence: None)
  Receive Date: 20100622
  Receipt Date: 20100609
  Transmission Date: 20101027
  Serious: Yes (Life-Threatening, Hospitalization, Other)
  Sender: FDA-Public Use
  Company Number: PHEH2004US08571

PATIENT

DRUGS (4)
  1. ZOMETA [Suspect]
     Indication: BREAST CANCER METASTATIC
     Dates: start: 20020101, end: 20040501
  2. DIAZEPAM [Suspect]
  3. DARVOCET-N 100 [Concomitant]
  4. AROMASIN [Concomitant]

REACTIONS (12)
  - AGITATION [None]
  - BIPOLAR DISORDER [None]
  - BONE DISORDER [None]
  - BORDERLINE PERSONALITY DISORDER [None]
  - DISTURBANCE IN SOCIAL BEHAVIOUR [None]
  - ESSENTIAL HYPERTENSION [None]
  - GANGRENE [None]
  - GASTROINTESTINAL SURGERY [None]
  - HYPERLIPIDAEMIA [None]
  - OSTEONECROSIS OF JAW [None]
  - SELF INJURIOUS BEHAVIOUR [None]
  - SUICIDE ATTEMPT [None]
